FAERS Safety Report 9764726 (Version 1)
Quarter: 2013Q4

REPORT INFORMATION
  Report Type: Spontaneous
  Country: US (occurrence: US)
  Receive Date: 20131217
  Receipt Date: 20131217
  Transmission Date: 20140711
  Serious: No
  Sender: FDA-Public Use
  Company Number: US-BIOGENIDEC-2013BI110914

PATIENT
  Age: 32 Year
  Sex: Female

DRUGS (4)
  1. TECFIDERA [Suspect]
     Indication: MULTIPLE SCLEROSIS
  2. KLONOPIN [Concomitant]
  3. PRENATAL [Concomitant]
  4. FERRALET 90 [Concomitant]

REACTIONS (3)
  - Urticaria [Unknown]
  - Flushing [Unknown]
  - Pruritus [Unknown]
